FAERS Safety Report 24161747 (Version 1)
Quarter: 2024Q3

REPORT INFORMATION
  Report Type: Report from Study
  Country: CA (occurrence: CA)
  Receive Date: 20240801
  Receipt Date: 20240801
  Transmission Date: 20241016
  Serious: Yes (Other)
  Sender: JOHNSON AND JOHNSON
  Company Number: CA-JNJFOC-20240510896

PATIENT
  Age: 36 Year
  Sex: Male

DRUGS (2)
  1. REMICADE [Suspect]
     Active Substance: INFLIXIMAB
     Indication: Crohn^s disease
     Dosage: EXPIRATION DATE -AUG-2026, -JUN-2026
     Route: 041
     Dates: start: 20150617, end: 20240501
  2. RENFLEXIS [Concomitant]
     Active Substance: INFLIXIMAB-ABDA

REACTIONS (6)
  - Pregnancy of partner [Unknown]
  - Hypoacusis [Unknown]
  - Tympanic membrane perforation [Recovered/Resolved]
  - Sinusitis [Recovering/Resolving]
  - Ear infection [Unknown]
  - Tympanic membrane perforation [Unknown]

NARRATIVE: CASE EVENT DATE: 20240404
